FAERS Safety Report 6032863-0 (Version None)
Quarter: 2009Q1

REPORT INFORMATION
  Report Type: 
  Country: None (occurrence: None)
  Receive Date: 20090107
  Receipt Date: 20090107
  Transmission Date: 20090719
  Serious: Yes (Hospitalization)
  Sender: FDA-Public Use
  Company Number: None

PATIENT
  Age: 92 Year
  Sex: Female
  Weight: 67 kg

DRUGS (7)
  1. MOXIFLOXACIN HCL [Suspect]
     Indication: BRONCHITIS
     Dosage: 400 DAILY PO
     Route: 048
     Dates: start: 20081201, end: 20081230
  2. LEVOFLOXACIN [Suspect]
     Indication: PNEUMONIA
     Dosage: 500 DAILY PO
     Route: 048
  3. AMLODIPINE [Concomitant]
  4. ARICEPT [Concomitant]
  5. PLAVIX [Concomitant]
  6. PRILOSEC [Concomitant]
  7. TYLENOL (CAPLET) [Concomitant]

REACTIONS (2)
  - ANAEMIA [None]
  - PNEUMONIA [None]
